FAERS Safety Report 10146038 (Version 4)
Quarter: 2014Q2

REPORT INFORMATION
  Report Type: Spontaneous
  Country: JP (occurrence: JP)
  Receive Date: 20140501
  Receipt Date: 20140624
  Transmission Date: 20141212
  Serious: Yes (Hospitalization)
  Sender: FDA-Public Use
  Company Number: JP-JNJFOC-20140419313

PATIENT
  Age: 1 Year
  Sex: Male
  Weight: 10 kg

DRUGS (9)
  1. REMICADE [Suspect]
     Indication: KAWASAKI^S DISEASE
     Route: 042
     Dates: start: 20140227, end: 20140227
  2. GASTER [Suspect]
     Indication: PRODUCT USED FOR UNKNOWN INDICATION
     Route: 048
     Dates: start: 20140224, end: 20140319
  3. ASPIRIN [Suspect]
     Indication: PRODUCT USED FOR UNKNOWN INDICATION
     Route: 048
     Dates: start: 20140221, end: 20140319
  4. GAMMA-GLOBULIN [Concomitant]
     Route: 051
     Dates: start: 20140221
  5. GAMMA-GLOBULIN [Concomitant]
     Route: 051
     Dates: start: 20140218
  6. PREDNISOLONE [Concomitant]
     Route: 065
  7. PREDNISOLONE [Concomitant]
     Route: 065
  8. PREDNISOLONE [Concomitant]
     Route: 065
     Dates: start: 20140224
  9. IMMUNOGLOBULIN G HUMAN [Concomitant]
     Route: 051
     Dates: start: 20140224

REACTIONS (2)
  - Stevens-Johnson syndrome [Recovering/Resolving]
  - Off label use [Unknown]
